FAERS Safety Report 6466378-2 (Version None)
Quarter: 2009Q4

REPORT INFORMATION
  Report Type: 
  Country: None (occurrence: None)
  Receive Date: 20091202
  Receipt Date: 20091124
  Transmission Date: 20100525
  Serious: Yes (Hospitalization)
  Sender: FDA-Public Use
  Company Number: FR-ASTRAZENECA-2009SE28627

PATIENT
  Age: 24644 Day
  Sex: Female

DRUGS (7)
  1. CRESTOR [Suspect]
     Indication: HYPERCHOLESTEROLAEMIA
     Route: 048
     Dates: end: 20090721
  2. ISKEDYL FORT [Suspect]
     Route: 048
     Dates: end: 20090720
  3. EUTHYRAL [Concomitant]
  4. SEROPLEX [Concomitant]
  5. SERESTA [Concomitant]
  6. ATARAX [Concomitant]
  7. LAROXYL [Concomitant]

REACTIONS (1)
  - LUNG DISORDER [None]
